FAERS Safety Report 7406061-X (Version None)
Quarter: 2011Q2

REPORT INFORMATION
  Report Type: 
  Country: None (occurrence: None)
  Receive Date: 20110411
  Receipt Date: 20110401
  Transmission Date: 20111010
  Serious: Yes (Hospitalization)
  Sender: FDA-Public Use
  Company Number: B0710206A

PATIENT
  Age: 36 Year
  Sex: Female

DRUGS (5)
  1. NOZINAN [Suspect]
     Indication: BIPOLAR DISORDER
     Dosage: 100MG PER DAY
     Route: 048
     Dates: start: 20100909, end: 20100929
  2. SERESTA [Concomitant]
     Route: 065
  3. LEVOTHYROX [Concomitant]
     Route: 048
  4. TERALITHE [Concomitant]
     Route: 065
  5. LAMICTAL [Suspect]
     Indication: DEPRESSION
     Route: 048
     Dates: start: 20100911, end: 20100927

REACTIONS (8)
  - ANTINUCLEAR ANTIBODY INCREASED [None]
  - PHOTOSENSITIVITY REACTION [None]
  - ERYTHEMA [None]
  - LYMPHOPENIA [None]
  - SYSTEMIC LUPUS ERYTHEMATOSUS [None]
  - TOXIC SKIN ERUPTION [None]
  - RASH MACULO-PAPULAR [None]
  - ORAL CANDIDIASIS [None]
